FAERS Safety Report 24178877 (Version 1)
Quarter: 2024Q3

REPORT INFORMATION
  Report Type: Spontaneous
  Country: IT (occurrence: IT)
  Receive Date: 20240806
  Receipt Date: 20240806
  Transmission Date: 20241016
  Serious: Yes (Hospitalization)
  Sender: RANBAXY
  Company Number: IT-MINISAL02-985689

PATIENT
  Age: 86 Year
  Sex: Female

DRUGS (6)
  1. LORAZEPAM [Suspect]
     Active Substance: LORAZEPAM
     Indication: Substance abuse
     Dosage: 17.5 MILLIGRAM, TOTAL 1, LORAZEPAM 2.5 MG: 7 TABLETS
     Route: 048
     Dates: start: 20240116, end: 20240116
  2. ASPIRIN [Suspect]
     Active Substance: ASPIRIN
     Indication: Substance abuse
     Dosage: TOTAL 1, ASA 100 MG: 7 TABLETS
     Route: 048
     Dates: start: 20240116, end: 20240116
  3. EUTHYROX [Suspect]
     Active Substance: LEVOTHYROXINE SODIUM
     Indication: Substance abuse
     Dosage: TOTAL 1, EUTHYROX 75 MCG: 7 TABLETS
     Route: 048
     Dates: start: 20240116, end: 20240116
  4. AMLODIPINE\INDAPAMIDE\PERINDOPRIL [Suspect]
     Active Substance: AMLODIPINE\INDAPAMIDE\PERINDOPRIL
     Indication: Substance abuse
     Dosage: TOTAL 1, TRIPLIAM 5/1.25/5 MG: 7 TABLETS
     Route: 048
     Dates: start: 20240116, end: 20240116
  5. MIRTAZAPINE [Suspect]
     Active Substance: MIRTAZAPINE
     Indication: Substance abuse
     Dosage: TOTAL 1, MIRTAZAPINE 30 MG: 7 TABLETS.
     Route: 048
     Dates: start: 20240116, end: 20240116
  6. DULOXETINE [Suspect]
     Active Substance: DULOXETINE
     Indication: Substance abuse
     Dosage: TOTAL 1, DULOXETINE 60 MG: 7 TABLETS
     Route: 048
     Dates: start: 20240116, end: 20240116

REACTIONS (2)
  - Psychomotor skills impaired [Unknown]
  - Substance abuse [Unknown]

NARRATIVE: CASE EVENT DATE: 20240116
